FAERS Safety Report 8425224-8 (Version None)
Quarter: 2012Q2

REPORT INFORMATION
  Report Type: 
  Country: None (occurrence: None)
  Receive Date: 20120529
  Receipt Date: 20120518
  Transmission Date: 20120825
  Serious: Yes (Hospitalization)
  Sender: FDA-Public Use
  Company Number: 2012031793

PATIENT
  Age: 55 Year
  Sex: Female
  Weight: 95.2554 kg

DRUGS (55)
  1. ASPIRIN [Concomitant]
  2. ATELVIA (RISEDRONATE SODIUM) [Concomitant]
  3. VITAMIN D [Concomitant]
  4. VITAMIN B (VITAMIN B) [Concomitant]
  5. MORPHINE SULFATE CR (MORPHINE SULFATE) [Concomitant]
  6. DIPHENHYDRAMINE HCL [Concomitant]
  7. HUMALOG [Concomitant]
  8. CRESTOR [Concomitant]
  9. PRIVIGEN [Suspect]
  10. NITROSTAT [Concomitant]
  11. FOLIC ACID [Concomitant]
  12. ISOSORBIDE MN (ISOSORBIDE MONONITRATE) [Concomitant]
  13. SALAGEN [Concomitant]
  14. PRIVIGEN [Suspect]
     Indication: MULTIPLE SCLEROSIS
     Dosage: SEE IMAGE
     Route: 042
     Dates: start: 20111122
  15. PRIVIGEN [Suspect]
     Indication: SYSTEMIC LUPUS ERYTHEMATOSUS
     Dosage: SEE IMAGE
     Route: 042
     Dates: start: 20111122
  16. PRIVIGEN [Suspect]
     Indication: HYPOGAMMAGLOBULINAEMIA
     Dosage: SEE IMAGE
     Route: 042
     Dates: start: 20111122
  17. PRIVIGEN [Suspect]
     Indication: MULTIPLE SCLEROSIS
     Dosage: SEE IMAGE
     Route: 042
     Dates: start: 20120426, end: 20120426
  18. PRIVIGEN [Suspect]
     Indication: SYSTEMIC LUPUS ERYTHEMATOSUS
     Dosage: SEE IMAGE
     Route: 042
     Dates: start: 20120426, end: 20120426
  19. PRIVIGEN [Suspect]
     Indication: HYPOGAMMAGLOBULINAEMIA
     Dosage: SEE IMAGE
     Route: 042
     Dates: start: 20120426, end: 20120426
  20. PRIVIGEN [Suspect]
     Indication: MULTIPLE SCLEROSIS
     Dosage: SEE IMAGE
     Route: 042
     Dates: start: 20120426, end: 20120426
  21. PRIVIGEN [Suspect]
     Indication: SYSTEMIC LUPUS ERYTHEMATOSUS
     Dosage: SEE IMAGE
     Route: 042
     Dates: start: 20120426, end: 20120426
  22. PRIVIGEN [Suspect]
     Indication: HYPOGAMMAGLOBULINAEMIA
     Dosage: SEE IMAGE
     Route: 042
     Dates: start: 20120426, end: 20120426
  23. PRIVIGEN [Suspect]
     Indication: MULTIPLE SCLEROSIS
     Dosage: SEE IMAGE
     Route: 042
     Dates: start: 20111109
  24. PRIVIGEN [Suspect]
     Indication: SYSTEMIC LUPUS ERYTHEMATOSUS
     Dosage: SEE IMAGE
     Route: 042
     Dates: start: 20111109
  25. PRIVIGEN [Suspect]
     Indication: HYPOGAMMAGLOBULINAEMIA
     Dosage: SEE IMAGE
     Route: 042
     Dates: start: 20111109
  26. PRIVIGEN [Suspect]
     Indication: MULTIPLE SCLEROSIS
     Dosage: SEE IMAGE
     Route: 042
     Dates: start: 20111122, end: 20111122
  27. PRIVIGEN [Suspect]
     Indication: SYSTEMIC LUPUS ERYTHEMATOSUS
     Dosage: SEE IMAGE
     Route: 042
     Dates: start: 20111122, end: 20111122
  28. PRIVIGEN [Suspect]
     Indication: HYPOGAMMAGLOBULINAEMIA
     Dosage: SEE IMAGE
     Route: 042
     Dates: start: 20111122, end: 20111122
  29. PRIVIGEN [Suspect]
     Indication: MULTIPLE SCLEROSIS
     Dosage: SEE IMAGE
     Route: 042
     Dates: start: 20111122, end: 20111122
  30. PRIVIGEN [Suspect]
     Indication: SYSTEMIC LUPUS ERYTHEMATOSUS
     Dosage: SEE IMAGE
     Route: 042
     Dates: start: 20111122, end: 20111122
  31. PRIVIGEN [Suspect]
     Indication: HYPOGAMMAGLOBULINAEMIA
     Dosage: SEE IMAGE
     Route: 042
     Dates: start: 20111122, end: 20111122
  32. PRIVIGEN [Suspect]
     Indication: MULTIPLE SCLEROSIS
     Dosage: SEE IMAGE
     Route: 042
     Dates: start: 20111109
  33. PRIVIGEN [Suspect]
     Indication: SYSTEMIC LUPUS ERYTHEMATOSUS
     Dosage: SEE IMAGE
     Route: 042
     Dates: start: 20111109
  34. PRIVIGEN [Suspect]
     Indication: HYPOGAMMAGLOBULINAEMIA
     Dosage: SEE IMAGE
     Route: 042
     Dates: start: 20111109
  35. PRIVIGEN [Suspect]
  36. DIOVAN [Concomitant]
  37. PRIVIGEN [Suspect]
  38. CALCIUM CARBONATE [Concomitant]
  39. PRILOSEC [Concomitant]
  40. PRIVIGEN [Suspect]
  41. POTASSIUM C1 (POTASSIUM CHLORIDE) [Concomitant]
  42. LANTUS [Concomitant]
  43. WARFARIN SODIUM [Concomitant]
  44. PRIVIGEN [Suspect]
  45. PREDNISONE TAB [Concomitant]
  46. DILTIAZEM [Concomitant]
  47. PLAVIX [Concomitant]
  48. LEVOXYL [Concomitant]
  49. NEURONTIN [Concomitant]
  50. VITAMIN B12 [Concomitant]
  51. EPINEPHRINE [Concomitant]
  52. PRIVIGEN [Suspect]
  53. AZATHIOPRINE [Concomitant]
  54. PERCOCET [Concomitant]
  55. MORPHINE SULFATE IR (MORPHINE SULFATE) [Concomitant]

REACTIONS (6)
  - CHEST PAIN [None]
  - HEADACHE [None]
  - FATIGUE [None]
  - NEPHROLITHIASIS [None]
  - INTERNATIONAL NORMALISED RATIO INCREASED [None]
  - OFF LABEL USE [None]
